FAERS Safety Report 13590122 (Version 1)
Quarter: 2017Q2

REPORT INFORMATION
  Report Type: Spontaneous
  Country: AU (occurrence: AU)
  Receive Date: 20170530
  Receipt Date: 20170530
  Transmission Date: 20170830
  Serious: Yes (Hospitalization, Other)
  Sender: FDA-Public Use
  Company Number: AU-IBIGEN-2017.02710

PATIENT
  Age: 39 Year
  Sex: Male

DRUGS (6)
  1. PIPERACILLIN AND TAZOBACTAM [Suspect]
     Active Substance: PIPERACILLIN SODIUM\TAZOBACTAM SODIUM
     Dosage: 4.5 G
     Dates: start: 20170116, end: 20170122
  2. AZITHROMYCIN ANHYDROUS. [Suspect]
     Active Substance: AZITHROMYCIN ANHYDROUS
     Dosage: 500 MG DAILY
     Dates: start: 20170116
  3. CEFTRIAXONE. [Suspect]
     Active Substance: CEFTRIAXONE
     Dates: start: 20170116
  4. VANCOMYCIN [Suspect]
     Active Substance: VANCOMYCIN
     Dosage: 750 MG
     Dates: start: 20170118, end: 20170120
  5. MEROPENEM. [Suspect]
     Active Substance: MEROPENEM
     Dosage: 1 G
     Dates: start: 20170117, end: 20170120
  6. CIPROFLOXACIN. [Suspect]
     Active Substance: CIPROFLOXACIN
     Dosage: 800 MG DAILY
     Dates: start: 20170117, end: 20170121

REACTIONS (3)
  - Eosinophilia [Not Recovered/Not Resolved]
  - Pyrexia [Not Recovered/Not Resolved]
  - Bradycardia [Not Recovered/Not Resolved]

NARRATIVE: CASE EVENT DATE: 20170124
